FAERS Safety Report 13429122 (Version 2)
Quarter: 2017Q2

REPORT INFORMATION
  Report Type: Spontaneous
  Country: GR (occurrence: GR)
  Receive Date: 20170411
  Receipt Date: 20170425
  Transmission Date: 20170830
  Serious: Yes (Hospitalization, Other)
  Sender: FDA-Public Use
  Company Number: GR-IMPAX LABORATORIES, INC-2017-IPXL-00904

PATIENT
  Age: 59 Year
  Sex: Male

DRUGS (20)
  1. PROPOFOL. [Concomitant]
     Active Substance: PROPOFOL
     Indication: PRODUCT USED FOR UNKNOWN INDICATION
     Dosage: UNK, DAY 3 TO DAY 12 AND 14, 15+ DAY 24 TO 26+ DAY 30
     Route: 042
  2. FLUCONAZOLE. [Concomitant]
     Active Substance: FLUCONAZOLE
     Indication: PRODUCT USED FOR UNKNOWN INDICATION
     Dosage: UNK, DAY 27 TO DAY 30
     Route: 042
  3. BIVALIRUDINE [Concomitant]
     Active Substance: BIVALIRUDIN
     Indication: PRODUCT USED FOR UNKNOWN INDICATION
     Dosage: UNK, DAY 24 TO DAY 28
     Route: 042
  4. NOREPINEPHRINE. [Concomitant]
     Active Substance: NOREPINEPHRINE
     Indication: PRODUCT USED FOR UNKNOWN INDICATION
     Dosage: UNK, DAY 4 TO DAY 1DAY 250 AND DAY 23 TO
     Route: 042
  5. BUDESONIDE. [Concomitant]
     Active Substance: BUDESONIDE
     Indication: PRODUCT USED FOR UNKNOWN INDICATION
     Dosage: UNK, DAY 1 TO DAY 30
     Route: 045
  6. GENTAMICIN. [Concomitant]
     Active Substance: GENTAMICIN
     Indication: PRODUCT USED FOR UNKNOWN INDICATION
     Dosage: UNK, DAY 4 TO DAYS 17
     Route: 042
  7. AMIODARONE [Concomitant]
     Active Substance: AMIODARONE
     Indication: PRODUCT USED FOR UNKNOWN INDICATION
     Dosage: UNK, DAY 1 TO DAY 4 AND DAY 18 TO DAY 30
     Route: 042
  8. REMIFENTANIL [Concomitant]
     Active Substance: REMIFENTANIL
     Indication: PRODUCT USED FOR UNKNOWN INDICATION
     Dosage: UNK, DAY 3 TO DAY 12 AND 14, 15+ DAY 24 TO 26+ DAY 30
     Route: 042
  9. FUROSEMIDE. [Concomitant]
     Active Substance: FUROSEMIDE
     Indication: PRODUCT USED FOR UNKNOWN INDICATION
     Dosage: UNK, DAY 6 TO DAY 30
     Route: 042
  10. COLISTIN [Concomitant]
     Active Substance: COLISTIN
     Indication: PRODUCT USED FOR UNKNOWN INDICATION
     Dosage: UNK, DAY 4 TO DAY 17 + DAY 20 TO DAY 30
     Route: 042
  11. LEVETIRACETAM. [Concomitant]
     Active Substance: LEVETIRACETAM
     Indication: PROPHYLAXIS
     Dosage: UNK, DAY 1 TO DAY 30
     Route: 042
  12. METOCLOPRAMIDE. [Concomitant]
     Active Substance: METOCLOPRAMIDE
     Indication: PRODUCT USED FOR UNKNOWN INDICATION
     Dosage: UNK,DAY 5 TO DAY 17
     Route: 042
  13. DEXAMETHASONE. [Concomitant]
     Active Substance: DEXAMETHASONE
     Indication: PRODUCT USED FOR UNKNOWN INDICATION
     Dosage: UNK, DAY 7 TO DAY 27
     Route: 042
  14. RANITIDINE. [Concomitant]
     Active Substance: RANITIDINE
     Indication: PRODUCT USED FOR UNKNOWN INDICATION
     Dosage: UNK, DAY 21 TO DAY 30
     Route: 042
  15. OMEPRAZOLE. [Concomitant]
     Active Substance: OMEPRAZOLE
     Indication: PRODUCT USED FOR UNKNOWN INDICATION
     Dosage: UNK, DAY 1 TO DAY 20
     Route: 042
  16. TIGECYCLINE. [Concomitant]
     Active Substance: TIGECYCLINE
     Indication: PRODUCT USED FOR UNKNOWN INDICATION
     Dosage: UNK, DAY 20 TO DAY 30
     Route: 042
  17. PHENYTOIN CHEWABLE [Suspect]
     Active Substance: PHENYTOIN
     Indication: PRODUCT USED FOR UNKNOWN INDICATION
     Dosage: UNK, DAY 19 TO 25 DAYS
     Route: 042
  18. DOPAMINE [Concomitant]
     Active Substance: DOPAMINE\DOPAMINE HYDROCHLORIDE
     Indication: PRODUCT USED FOR UNKNOWN INDICATION
     Dosage: UNK, DAY 1 TO DAY 27
     Route: 042
  19. MEROPENEM. [Concomitant]
     Active Substance: MEROPENEM
     Indication: PRODUCT USED FOR UNKNOWN INDICATION
     Dosage: UNK, DAY 2 TO DAY 17
     Route: 042
  20. ENOXAPARIN [Concomitant]
     Active Substance: ENOXAPARIN
     Indication: PRODUCT USED FOR UNKNOWN INDICATION
     Dosage: UNK, DAY 10 TO DAY 24 + DAY 29 AND 30
     Route: 058

REACTIONS (5)
  - Haemodynamic instability [Recovered/Resolved]
  - Renal impairment [Recovering/Resolving]
  - Mydriasis [Recovered/Resolved]
  - Coma [Recovered/Resolved]
  - Toxicity to various agents [Recovering/Resolving]
